FAERS Safety Report 23053958 (Version 1)
Quarter: 2023Q4

REPORT INFORMATION
  Report Type: Spontaneous
  Country: CN (occurrence: CN)
  Receive Date: 20231011
  Receipt Date: 20231011
  Transmission Date: 20240109
  Serious: Yes (Hospitalization, Other)
  Sender: FDA-Public Use
  Company Number: CN-MLMSERVICE-20230925-4553088-1

PATIENT
  Age: 55 Year
  Sex: Female

DRUGS (6)
  1. METHOTREXATE [Suspect]
     Active Substance: METHOTREXATE
     Indication: Systemic scleroderma
     Dates: start: 2012, end: 2020
  2. CYCLOPHOSPHAMIDE [Suspect]
     Active Substance: CYCLOPHOSPHAMIDE
     Indication: Systemic scleroderma
     Dosage: DOSE REDUCED
     Dates: start: 201607, end: 201911
  3. PREDNISOLONE [Suspect]
     Active Substance: PREDNISOLONE
     Indication: Systemic scleroderma
     Dates: start: 2012
  4. HERBALS [Suspect]
     Active Substance: HERBALS
     Indication: Systemic scleroderma
     Dates: start: 201911
  5. FUSU [Concomitant]
     Indication: Systemic scleroderma
     Dates: start: 201911
  6. CYCLOPHOSPHAMIDE [Suspect]
     Active Substance: CYCLOPHOSPHAMIDE
     Indication: Systemic scleroderma
     Dates: start: 201501, end: 201607

REACTIONS (1)
  - Malacoplakia [Recovered/Resolved]

NARRATIVE: CASE EVENT DATE: 20200101
